FAERS Safety Report 15434186 (Version 2)
Quarter: 2018Q4

REPORT INFORMATION
  Report Type: Spontaneous
  Country: JP (occurrence: JP)
  Receive Date: 20180927
  Receipt Date: 20181001
  Transmission Date: 20190204
  Serious: Yes (Other)
  Sender: FDA-Public Use
  Company Number: PHJP2018JP016803

PATIENT
  Age: 60 Year
  Sex: Male

DRUGS (1)
  1. ZOLEDRONATE [Suspect]
     Active Substance: ZOLEDRONIC ACID
     Indication: METASTASES TO BONE
     Dosage: UNK
     Route: 041
     Dates: start: 201301, end: 201703

REACTIONS (5)
  - Inflammation [Recovering/Resolving]
  - Gingival abscess [Unknown]
  - Osteonecrosis of jaw [Unknown]
  - Gingival pain [Unknown]
  - Bone disorder [Unknown]
